FAERS Safety Report 9797173 (Version 1)
Quarter: 2014Q1

REPORT INFORMATION
  Report Type: Spontaneous
  Country: CA (occurrence: CA)
  Receive Date: 20140106
  Receipt Date: 20140106
  Transmission Date: 20141002
  Serious: Yes (Congenital Anomaly, Other)
  Sender: FDA-Public Use
  Company Number: PHHY2013CA152378

PATIENT
  Sex: Female

DRUGS (6)
  1. METHOTREXATE [Suspect]
     Indication: RHEUMATOID ARTHRITIS
     Dosage: (MATERNAL DOSE: 7.5 MG, QW)
     Route: 064
  2. FLUCONAZOLE [Suspect]
     Dosage: (MATERNAL DOSE: 150 MG, QW)
     Route: 064
  3. ROFECOXIB [Suspect]
     Dosage: (MATERNAL DOSE: 25 MG, QD)
     Route: 064
  4. RANITIDINE [Suspect]
     Dosage: (MATERNAL DOSE: 300 MG/DAY)
     Route: 064
  5. ISONIAZID [Suspect]
     Dosage: (MATERNAL DOSE: 300 MG/DAY)
     Route: 064
  6. MEPREDNISONE [Suspect]
     Dosage: (MATERNAL DOSE: 8 MG, QD)
     Route: 064

REACTIONS (17)
  - Microcephaly [Unknown]
  - Skull malformation [Unknown]
  - Dysmorphism [Unknown]
  - Nose deformity [Unknown]
  - Exophthalmos [Unknown]
  - Ear malformation [Unknown]
  - Cleft palate [Unknown]
  - Neck deformity [Unknown]
  - Finger deformity [Unknown]
  - Talipes [Unknown]
  - Congenital skin dimples [Unknown]
  - Premature baby [Unknown]
  - Cerebral ventricle dilatation [Unknown]
  - Low birth weight baby [Unknown]
  - Foetal growth restriction [Unknown]
  - Apgar score abnormal [Unknown]
  - Foetal exposure during pregnancy [Unknown]
